FAERS Safety Report 10385724 (Version 1)
Quarter: 2014Q3

REPORT INFORMATION
  Report Type: Spontaneous
  Country: AU (occurrence: AU)
  Receive Date: 20140814
  Receipt Date: 20140814
  Transmission Date: 20150326
  Serious: Yes (Other)
  Sender: FDA-Public Use
  Company Number: AU-PFIZER INC-2014225692

PATIENT
  Sex: Male

DRUGS (6)
  1. ZOLOFT [Suspect]
     Active Substance: SERTRALINE HYDROCHLORIDE
     Dosage: 100 MG, UNK
     Dates: start: 2014, end: 2014
  2. ZOLOFT [Suspect]
     Active Substance: SERTRALINE HYDROCHLORIDE
     Dosage: 50 MG, UNK
     Dates: start: 2014, end: 2014
  3. ZOLOFT [Suspect]
     Active Substance: SERTRALINE HYDROCHLORIDE
     Dosage: 25 MG, UNK
     Dates: start: 2014, end: 2014
  4. ZOLOFT [Suspect]
     Active Substance: SERTRALINE HYDROCHLORIDE
     Dosage: 75 MG, UNK
     Dates: start: 2014, end: 2014
  5. ZOLOFT [Suspect]
     Active Substance: SERTRALINE HYDROCHLORIDE
     Dosage: 12 MG, UNK
     Dates: start: 2014, end: 201407
  6. ZOLOFT [Suspect]
     Active Substance: SERTRALINE HYDROCHLORIDE
     Dosage: 25 MG, UNK
     Dates: start: 2014, end: 2014

REACTIONS (11)
  - Pain [Unknown]
  - Secretion discharge [Unknown]
  - Headache [Not Recovered/Not Resolved]
  - Drug intolerance [Unknown]
  - Loss of consciousness [Recovered/Resolved]
  - Nausea [Unknown]
  - Constipation [Unknown]
  - Drug withdrawal syndrome [Not Recovered/Not Resolved]
  - Tenderness [Unknown]
  - Hyperhidrosis [Unknown]
  - Sinusitis [Unknown]

NARRATIVE: CASE EVENT DATE: 2014
